FAERS Safety Report 18591441 (Version 1)
Quarter: 2020Q4

REPORT INFORMATION
  Report Type: Spontaneous
  Country: FR (occurrence: FR)
  Receive Date: 20201208
  Receipt Date: 20201208
  Transmission Date: 20210114
  Serious: Yes (Death, Hospitalization)
  Sender: FDA-Public Use
  Company Number: FR-TEVA-2020-FR-1855618

PATIENT
  Age: 77 Year
  Sex: Male
  Weight: 103 kg

DRUGS (8)
  1. AMIODARONE [Suspect]
     Active Substance: AMIODARONE
     Indication: ARRHYTHMIA
     Route: 048
     Dates: end: 20200502
  2. FUROSEMIDE. [Concomitant]
     Active Substance: FUROSEMIDE
  3. PRADAXA [Concomitant]
     Active Substance: DABIGATRAN ETEXILATE MESYLATE
  4. LEVOCETIRIZINE (DICHLORHYDRATE DE) [Concomitant]
     Active Substance: LEVOCETIRIZINE
  5. TOVIAZ [Concomitant]
     Active Substance: FESOTERODINE FUMARATE
  6. SIMVASTATINE [Concomitant]
     Active Substance: SIMVASTATIN
  7. ALLOPURINOL. [Concomitant]
     Active Substance: ALLOPURINOL
  8. TRINIPATCH 5 MG/24 HEURES, DISPOSITIF TRANSDERMIQUE (22,4 MG / 7 CM ) [Concomitant]

REACTIONS (2)
  - Pulmonary fibrosis [Fatal]
  - Acute respiratory distress syndrome [Fatal]

NARRATIVE: CASE EVENT DATE: 20200502
